FAERS Safety Report 6932413-8 (Version None)
Quarter: 2010Q3

REPORT INFORMATION
  Report Type: 
  Country: None (occurrence: None)
  Receive Date: 20100817
  Receipt Date: 20100805
  Transmission Date: 20110219
  Serious: Yes (Hospitalization, Other)
  Sender: FDA-Public Use
  Company Number: 1-22321146

PATIENT
  Age: 6 Year
  Sex: Male
  Weight: 17.5088 kg

DRUGS (7)
  1. BACTRIM [Suspect]
     Dosage: ORAL
     Route: 048
  2. STUDY DRUG, PFIZER [Suspect]
     Dosage: 70MG, TWICE DAILY, ORAL
     Route: 048
     Dates: start: 20100113, end: 20100310
  3. CYCLOPHOSPHAMIDE [Suspect]
     Indication: CHEMOTHERAPY
     Dates: start: 20100318
  4. MORPHINE [Suspect]
     Dosage: ORAL
     Route: 048
  5. TOPOTECAN [Suspect]
     Indication: CHEMOTHERAPY
     Dates: start: 20100318
  6. G-CSF (GRANULOCYTE COLONY STIMULATING FACTOR) [Concomitant]
  7. CEFEPIME [Concomitant]

REACTIONS (8)
  - DISEASE PROGRESSION [None]
  - FEBRILE NEUTROPENIA [None]
  - LYMPHOPENIA [None]
  - NEOPLASM RECURRENCE [None]
  - NEUTROPENIA [None]
  - PAIN IN EXTREMITY [None]
  - THROMBOCYTOPENIA [None]
  - VIRAL INFECTION [None]
